FAERS Safety Report 17794578 (Version 1)
Quarter: 2020Q2

REPORT INFORMATION
  Report Type: Spontaneous
  Country: DE (occurrence: DE)
  Receive Date: 20200516
  Receipt Date: 20200516
  Transmission Date: 20200714
  Serious: Yes (Hospitalization)
  Sender: FDA-Public Use
  Company Number: DE-TEVA-2020-DE-1234764

PATIENT
  Age: 82 Year
  Sex: Female

DRUGS (10)
  1. ASS 100 [Suspect]
     Active Substance: ASPIRIN
     Dosage: 100 MILLIGRAM DAILY; 100 MG, 0-1-0-0
  2. DULOXETIN [Suspect]
     Active Substance: DULOXETINE
     Dosage: 20 MILLIGRAM DAILY; 20 MG, 1-0-0-0
  3. SALBUTAMOL [Concomitant]
     Active Substance: ALBUTEROL
     Dosage: REQUIREMENT
  4. PANTOPRAZOL [Concomitant]
     Active Substance: PANTOPRAZOLE SODIUM
     Dosage: 20 MILLIGRAM DAILY; 20 MG, 1-0-0-0
  5. PREGABALIN. [Concomitant]
     Active Substance: PREGABALIN
     Dosage: 75 MILLIGRAM DAILY; 25 MG, 1-1-1-0
  6. THEOPHYLLIN [Concomitant]
     Active Substance: THEOPHYLLINE ANHYDROUS
     Dosage: 300 MILLIGRAM DAILY; 300 MG, 1-0-0-0
  7. FLUTICASON/SALMETEROL [Concomitant]
     Dosage: 2 DOSAGE FORMS DAILY; 500|50 ?G, 1-0-1-0
  8. RAMIPRIL. [Concomitant]
     Active Substance: RAMIPRIL
     Dosage: 10 MILLIGRAM DAILY; 5 MG, 1-0-0-1
  9. SIMVASTATIN. [Concomitant]
     Active Substance: SIMVASTATIN
     Dosage: 40 MILLIGRAM DAILY; 40 MG, 0-0-1-0
  10. LORATADIN [Concomitant]
     Active Substance: LORATADINE
     Dosage: 10 MILLIGRAM DAILY; 10 MG, 1-0-0-0

REACTIONS (3)
  - Micturition disorder [Unknown]
  - Urinary incontinence [Unknown]
  - Haematuria [Unknown]
